FAERS Safety Report 25573211 (Version 2)
Quarter: 2025Q3

REPORT INFORMATION
  Report Type: Spontaneous
  Country: EU (occurrence: EU)
  Receive Date: 20250717
  Receipt Date: 20250730
  Transmission Date: 20251021
  Serious: Yes (Life-Threatening, Hospitalization)
  Sender: MERCK SHARP & DOHME LLC
  Company Number: None

PATIENT
  Age: 65 Year
  Sex: Female
  Weight: 61 kg

DRUGS (14)
  1. KEYTRUDA [Suspect]
     Active Substance: PEMBROLIZUMAB
     Indication: Clear cell renal cell carcinoma
     Dosage: 200 MG EVERY 21 DAYS (DOSE FORM ALSO REPORTED AS CONCENTRATE FOR SOLUTION FOR INFUSION)
     Route: 042
     Dates: start: 20231117, end: 20241022
  2. SIMVASTATIN [Concomitant]
     Active Substance: SIMVASTATIN
  3. PREDNISOLONE [Suspect]
     Active Substance: PREDNISOLONE
     Indication: Gastrointestinal disorder
     Dosage: 5MG
     Route: 048
     Dates: start: 20250217, end: 20250225
  4. PREDNISOLONE [Suspect]
     Active Substance: PREDNISOLONE
     Indication: Gastrointestinal disorder
     Dosage: 60MG/DAY
     Route: 048
     Dates: start: 20241220, end: 20241223
  5. PREDNISOLONE [Suspect]
     Active Substance: PREDNISOLONE
     Indication: Gastrointestinal disorder
     Dosage: 30MG
     Route: 048
     Dates: start: 20250206, end: 20250208
  6. PREDNISOLONE [Suspect]
     Active Substance: PREDNISOLONE
     Indication: Gastrointestinal disorder
     Dosage: 60MG/DAY
     Route: 048
     Dates: start: 20250116, end: 20250129
  7. PREDNISOLONE [Suspect]
     Active Substance: PREDNISOLONE
     Indication: Gastrointestinal disorder
     Dosage: 50MG/DAY
     Route: 048
     Dates: start: 20250130, end: 20250302
  8. PREDNISOLONE [Suspect]
     Active Substance: PREDNISOLONE
     Indication: Gastrointestinal disorder
     Dosage: 2.5MG
     Route: 048
     Dates: start: 20250226
  9. PREDNISOLONE [Suspect]
     Active Substance: PREDNISOLONE
     Indication: Gastrointestinal disorder
     Dosage: 30MG/DAY
     Route: 048
     Dates: start: 20241224, end: 20250115
  10. PREDNISOLONE [Suspect]
     Active Substance: PREDNISOLONE
     Indication: Gastrointestinal disorder
     Dosage: 10MG
     Route: 048
     Dates: start: 20250212, end: 20250216
  11. PREDNISOLONE [Suspect]
     Active Substance: PREDNISOLONE
     Indication: Gastrointestinal disorder
     Dosage: 20MG
     Route: 048
     Dates: start: 20250209, end: 20250211
  12. PREDNISOLONE [Suspect]
     Active Substance: PREDNISOLONE
     Indication: Gastrointestinal disorder
     Dosage: 40 MG
     Route: 048
     Dates: start: 20250203, end: 20250205
  13. TOPIRAMATE [Concomitant]
     Active Substance: TOPIRAMATE
  14. PROPRANOLOL [Concomitant]
     Active Substance: PROPRANOLOL HYDROCHLORIDE

REACTIONS (1)
  - Cytomegalovirus infection [Recovering/Resolving]

NARRATIVE: CASE EVENT DATE: 20250129
